FAERS Safety Report 4614802-X (Version None)
Quarter: 2005Q1

REPORT INFORMATION
  Report Type: 
  Country: None (occurrence: None)
  Receive Date: 20050322
  Receipt Date: 20050316
  Transmission Date: 20050727
  Serious: Yes (Other)
  Sender: FDA-Public Use
  Company Number: 200512416GDDC

PATIENT
  Age: 40 Year
  Sex: Female

DRUGS (2)
  1. MINIRIN [Suspect]
     Indication: ENURESIS
     Route: 045
     Dates: start: 20050309, end: 20050310
  2. ACETAMINOPHEN W/ CODEINE [Concomitant]
     Indication: HEADACHE
     Route: 048

REACTIONS (3)
  - FATIGUE [None]
  - HEADACHE [None]
  - NAUSEA [None]
